FAERS Safety Report 12267818 (Version 4)
Quarter: 2016Q3

REPORT INFORMATION
  Report Type: Report from Study
  Country: US (occurrence: US)
  Receive Date: 20160414
  Receipt Date: 20160801
  Transmission Date: 20161109
  Serious: No
  Sender: FDA-Public Use
  Company Number: US-AMGEN-USASL2016044201

PATIENT
  Age: 60 Year
  Sex: Female

DRUGS (1)
  1. ENBREL [Suspect]
     Active Substance: ETANERCEPT
     Indication: PSORIASIS
     Dosage: 50 MG, 2 TIMES/WK
     Route: 065
     Dates: start: 20160310

REACTIONS (10)
  - Vitreous floaters [Unknown]
  - Mobility decreased [Unknown]
  - Injection site discolouration [Unknown]
  - Musculoskeletal pain [Unknown]
  - Injection site haemorrhage [Unknown]
  - Finger deformity [Unknown]
  - Injection site bruising [Unknown]
  - Eye disorder [Unknown]
  - Arthralgia [Unknown]
  - Excessive cerumen production [Unknown]

NARRATIVE: CASE EVENT DATE: 2016
